FAERS Safety Report 6684264-X (Version None)
Quarter: 2010Q2

REPORT INFORMATION
  Report Type: 
  Country: None (occurrence: None)
  Receive Date: 20100416
  Receipt Date: 20100405
  Transmission Date: 20101027
  Serious: Yes (Other)
  Sender: FDA-Public Use
  Company Number: US-AMGEN-KDL391023

PATIENT
  Sex: Female

DRUGS (8)
  1. ENBREL [Suspect]
     Indication: PSORIASIS
     Route: 058
     Dates: start: 20081101, end: 20100203
  2. DIOVAN [Concomitant]
  3. COUMADIN [Concomitant]
  4. METOPROLOL TARTRATE [Concomitant]
  5. PRILOSEC [Concomitant]
  6. DIGOXIN [Concomitant]
  7. TRICOR [Concomitant]
  8. MOMETASONE FUROATE [Concomitant]

REACTIONS (2)
  - BLISTER [None]
  - STAPHYLOCOCCAL INFECTION [None]
